FAERS Safety Report 13018817 (Version 2)
Quarter: 2017Q1

REPORT INFORMATION
  Report Type: Spontaneous
  Country: DE (occurrence: DE)
  Receive Date: 20161212
  Receipt Date: 20170221
  Transmission Date: 20170428
  Serious: Yes (Other)
  Sender: FDA-Public Use
  Company Number: DE-TEVA-716426GER

PATIENT
  Sex: Female

DRUGS (5)
  1. NIFEDIPIN 20MG [Concomitant]
  2. CANDESARTAN 16MG [Concomitant]
  3. CLONIDIN-RATIOPHARM 300 MIKROGRAMM TABLETTEN [Suspect]
     Active Substance: CLONIDINE
  4. DOXAZOSIN 4MG [Concomitant]
  5. CLONIDIN-RATIOPHARM 75 MIKROGRAMM TABLETTEN [Suspect]
     Active Substance: CLONIDINE

REACTIONS (2)
  - Product dosage form confusion [Unknown]
  - Circulatory collapse [Unknown]
